FAERS Safety Report 19098009 (Version 12)
Quarter: 2023Q4

REPORT INFORMATION
  Report Type: Report from Study
  Country: CO (occurrence: CO)
  Receive Date: 20210406
  Receipt Date: 20231222
  Transmission Date: 20240109
  Serious: Yes (Hospitalization, Other)
  Sender: FDA-Public Use
  Company Number: NVSC2021CO074493

PATIENT
  Age: 47 Year
  Sex: Female

DRUGS (5)
  1. TASIGNA [Suspect]
     Active Substance: NILOTINIB
     Indication: Chronic myeloid leukaemia
     Dosage: UNK
     Route: 048
  2. TASIGNA [Suspect]
     Active Substance: NILOTINIB
     Indication: Philadelphia positive chronic myeloid leukaemia
     Dosage: 300 MG, Q12H
     Route: 048
     Dates: start: 20120413, end: 20210228
  3. TASIGNA [Suspect]
     Active Substance: NILOTINIB
     Dosage: UNK UNK, Q12H
     Route: 048
  4. TASIGNA [Suspect]
     Active Substance: NILOTINIB
     Dosage: 800 MG, QD
     Route: 048
     Dates: start: 20120413
  5. TASIGNA [Suspect]
     Active Substance: NILOTINIB
     Dosage: 400 MG (EVERY 12 HOURS)
     Route: 048
     Dates: start: 20120413

REACTIONS (25)
  - Umbilical hernia [Unknown]
  - Kidney infection [Unknown]
  - Colitis [Unknown]
  - Influenza [Unknown]
  - Viral infection [Unknown]
  - Illness [Unknown]
  - Mood altered [Unknown]
  - Infection [Unknown]
  - Vulvovaginal dryness [Unknown]
  - Movement disorder [Unknown]
  - Vulvovaginal pruritus [Unknown]
  - Respiratory tract infection [Unknown]
  - Discomfort [Unknown]
  - Gallbladder disorder [Unknown]
  - Abdominal distension [Unknown]
  - Anxiety [Unknown]
  - Feeling hot [Unknown]
  - Malaise [Unknown]
  - Headache [Unknown]
  - Splenomegaly [Recovered/Resolved]
  - COVID-19 [Recovered/Resolved]
  - Oropharyngeal pain [Recovered/Resolved]
  - Headache [Recovered/Resolved]
  - Pyrexia [Recovered/Resolved]
  - Inappropriate schedule of product administration [Unknown]

NARRATIVE: CASE EVENT DATE: 20210325
